FAERS Safety Report 22048035 (Version 8)
Quarter: 2023Q2

REPORT INFORMATION
  Report Type: Report from Study
  Country: US (occurrence: US)
  Receive Date: 20230301
  Receipt Date: 20230529
  Transmission Date: 20230722
  Serious: Yes (Other)
  Sender: FDA-Public Use
  Company Number: US-002147023-NVSC2023US044952

PATIENT
  Sex: Female

DRUGS (2)
  1. ENTRESTO [Suspect]
     Active Substance: SACUBITRIL\VALSARTAN
     Indication: Product used for unknown indication
     Dosage: UNK, BID
     Route: 048
  2. ENTRESTO [Suspect]
     Active Substance: SACUBITRIL\VALSARTAN
     Dosage: UNK, QD
     Route: 048

REACTIONS (7)
  - Pneumonia [Recovering/Resolving]
  - Weight decreased [Unknown]
  - Diarrhoea [Unknown]
  - Cough [Unknown]
  - Hypotension [Unknown]
  - Decreased activity [Unknown]
  - Inappropriate schedule of product administration [Unknown]
